FAERS Safety Report 6332206-9 (Version None)
Quarter: 2009Q3

REPORT INFORMATION
  Report Type: 
  Country: None (occurrence: None)
  Receive Date: 20090828
  Receipt Date: 20090820
  Transmission Date: 20100115
  Serious: Yes (Life-Threatening, Other)
  Sender: FDA-Public Use
  Company Number: GB-PFIZER INC-2009257214

PATIENT

DRUGS (4)
  1. AMLODIPINE BESYLATE [Suspect]
     Dosage: 5 MG, UNK
     Route: 048
     Dates: start: 20090729, end: 20090729
  2. ACETYLSALICYLIC ACID [Concomitant]
     Indication: ACUTE CORONARY SYNDROME
     Dosage: 75 MG, UNK
     Route: 048
     Dates: start: 20090729
  3. PREMARIN [Concomitant]
     Indication: HORMONE REPLACEMENT THERAPY
     Dosage: 625 UG, UNK
     Dates: start: 20090501
  4. SIMVASTATIN [Concomitant]
     Indication: BLOOD CHOLESTEROL INCREASED
     Dosage: 40 MG, UNK
     Route: 048
     Dates: start: 20090728

REACTIONS (1)
  - ANAPHYLACTIC REACTION [None]
